FAERS Safety Report 26183287 (Version 1)
Quarter: 2025Q4

REPORT INFORMATION
  Report Type: Spontaneous
  Country: US (occurrence: US)
  Receive Date: 20251221
  Receipt Date: 20251221
  Transmission Date: 20260118
  Serious: No
  Sender: MERCK SHARP & DOHME LLC
  Company Number: US-009507513-2361834

PATIENT
  Age: 48 Year
  Sex: Female

DRUGS (10)
  1. SUGAMMADEX [Suspect]
     Active Substance: SUGAMMADEX
     Dosage: TIME INTERVAL: TOTAL: TOTAL OF 16 MG/KG
  2. MIDAZOLAM [Concomitant]
     Active Substance: MIDAZOLAM
     Indication: Induction of anaesthesia
  3. PROPOFOL [Concomitant]
     Active Substance: PROPOFOL
     Indication: Induction of anaesthesia
  4. FENTANYL [Concomitant]
     Active Substance: FENTANYL
     Indication: Induction of anaesthesia
  5. LIDOCAINE [Concomitant]
     Active Substance: LIDOCAINE
     Indication: Induction of anaesthesia
  6. ROCURONIUM [Concomitant]
     Active Substance: ROCURONIUM BROMIDE
     Indication: Induction of anaesthesia
  7. ALBUTEROL [Concomitant]
     Active Substance: ALBUTEROL
     Indication: Anaphylactic reaction
  8. TERBUTALINE [Concomitant]
     Active Substance: TERBUTALINE
     Indication: Anaphylactic reaction
  9. EPINEPHRINE [Concomitant]
     Active Substance: EPINEPHRINE
     Indication: Anaphylactic reaction
  10. NOREPINEPHRINE [Concomitant]
     Active Substance: NOREPINEPHRINE

REACTIONS (1)
  - Therapeutic response unexpected [Unknown]
